FAERS Safety Report 7863151-5 (Version None)
Quarter: 2011Q4

REPORT INFORMATION
  Report Type: 
  Country: None (occurrence: None)
  Receive Date: 20111027
  Receipt Date: 20101129
  Transmission Date: 20120403
  Serious: No
  Sender: FDA-Public Use
  Company Number: US-AMGEN-USASP2010006742

PATIENT
  Age: 50 Year
  Sex: Male

DRUGS (5)
  1. ZYRTEC [Concomitant]
     Dosage: 10 MG, UNK
     Route: 048
  2. ASPIRIN [Concomitant]
     Dosage: 81 MG, UNK
     Route: 048
  3. VITAMIN C                          /00008001/ [Concomitant]
     Dosage: 500 MG, UNK
     Route: 048
  4. ENBREL [Suspect]
     Indication: PRODUCT USED FOR UNKNOWN INDICATION
     Dosage: 50 MG, 2 TIMES/WK
     Route: 058
  5. VITAMIN E                          /00110501/ [Concomitant]
     Dosage: 400 IU, UNK

REACTIONS (1)
  - SEASONAL ALLERGY [None]
